FAERS Safety Report 8664746 (Version 2)
Quarter: 2012Q4

REPORT INFORMATION
  Report Type: 
  Country: DK (occurrence: CA)
  Receive Date: 20120713
  Receipt Date: 20121214
  Transmission Date: 20130627
  Serious: Yes (Other)
  Sender: FDA-Public Use
  Company Number: CA-FRI-1000037010

PATIENT
  Age: 21 Year
  Sex: Male
  Weight: 120 kg

DRUGS (3)
  1. ESCITALOPRAM [Suspect]
     Indication: BIPOLAR II DISORDER
     Dosage: 20 mg
     Route: 048
     Dates: end: 20120215
  2. ESCITALOPRAM [Suspect]
     Indication: MAJOR DEPRESSION
  3. QUETIAPINE [Concomitant]
     Dates: start: 2010, end: 20120215

REACTIONS (6)
  - Suicidal ideation [Unknown]
  - Disturbance in sexual arousal [Unknown]
  - Erectile dysfunction [Unknown]
  - Libido decreased [Unknown]
  - Premature ejaculation [Unknown]
  - Orgasmic sensation decreased [Unknown]
